FAERS Safety Report 8076387-8 (Version None)
Quarter: 2012Q1

REPORT INFORMATION
  Report Type: 
  Country: None (occurrence: None)
  Receive Date: 20120127
  Receipt Date: 20120127
  Transmission Date: 20120608
  Serious: Yes (Other)
  Sender: FDA-Public Use
  Company Number: None

PATIENT
  Age: 58 Year
  Sex: Male
  Weight: 69.853 kg

DRUGS (3)
  1. METHYLPREDNISOLONE [Suspect]
     Indication: RESPIRATORY TRACT CONGESTION
     Dosage: 4MG
     Route: 048
     Dates: start: 20120124, end: 20120124
  2. METHYLPREDNISOLONE [Suspect]
     Indication: DYSPNOEA
     Dosage: 4MG
     Route: 048
     Dates: start: 20120124, end: 20120124
  3. METHYLPREDNISOLONE [Suspect]
     Indication: PHARYNGEAL ERYTHEMA
     Dosage: 4MG
     Route: 048
     Dates: start: 20120124, end: 20120124

REACTIONS (1)
  - HICCUPS [None]
